FAERS Safety Report 12185421 (Version 1)
Quarter: 2016Q1

REPORT INFORMATION
  Report Type: Not Available
  Country: None (occurrence: US)
  Receive Date: 20160316
  Receipt Date: 20160316
  Transmission Date: 20160526
  Serious: Yes (Death, Life-Threatening, Hospitalization, Disabling, Other)
  Sender: FDA-Public Use
  Company Number: TW-AKORN-26409

PATIENT
  Age: 69 Year
  Sex: Male

DRUGS (1)
  1. LEVETIRACETAM ORAL SOLUTION [Suspect]
     Active Substance: LEVETIRACETAM

REACTIONS (1)
  - Transplantation complication [Fatal]

NARRATIVE: CASE EVENT DATE: 20110101
